FAERS Safety Report 19676034 (Version 4)
Quarter: 2021Q3

REPORT INFORMATION
  Report Type: Report from Study
  Country: KW (occurrence: KW)
  Receive Date: 20210809
  Receipt Date: 20210930
  Transmission Date: 20211014
  Serious: Yes (Other)
  Sender: FDA-Public Use
  Company Number: NVSC2021KW141452

PATIENT
  Age: 40 Year
  Sex: Female

DRUGS (2)
  1. XELODA [Concomitant]
     Active Substance: CAPECITABINE
     Indication: PRODUCT USED FOR UNKNOWN INDICATION
     Dosage: UNK UNK, Q12H (TWICE)
     Route: 065
  2. TYKERB [Suspect]
     Active Substance: LAPATINIB DITOSYLATE
     Indication: BREAST CANCER
     Dosage: 5 DF, QD (1250 MG)
     Route: 048
     Dates: start: 20210405

REACTIONS (10)
  - Hypoaesthesia [Not Recovered/Not Resolved]
  - Swelling face [Not Recovered/Not Resolved]
  - Simple partial seizures [Not Recovered/Not Resolved]
  - Central nervous system lesion [Not Recovered/Not Resolved]
  - Crying [Not Recovered/Not Resolved]
  - Asthenia [Not Recovered/Not Resolved]
  - Depression [Not Recovered/Not Resolved]
  - Tremor [Not Recovered/Not Resolved]
  - Anxiety [Not Recovered/Not Resolved]
  - Cushingoid [Not Recovered/Not Resolved]

NARRATIVE: CASE EVENT DATE: 202106
